FAERS Safety Report 11772494 (Version 6)
Quarter: 2017Q2

REPORT INFORMATION
  Report Type: Spontaneous
  Country: US (occurrence: US)
  Receive Date: 20151124
  Receipt Date: 20170621
  Transmission Date: 20170829
  Serious: Yes (Hospitalization, Other)
  Sender: FDA-Public Use
  Company Number: US-GLAXOSMITHKLINE-US2015GSK166764

PATIENT
  Age: 49 Year
  Sex: Female

DRUGS (9)
  1. FLOLAN [Suspect]
     Active Substance: EPOPROSTENOL SODIUM
     Dosage: 34 DF, CO
     Dates: start: 20110114
  2. FLOLAN [Suspect]
     Active Substance: EPOPROSTENOL SODIUM
     Dosage: UNK
  3. FLOLAN [Suspect]
     Active Substance: EPOPROSTENOL SODIUM
     Indication: PULMONARY HYPERTENSION
     Dosage: 34 DF, CO
     Route: 042
     Dates: start: 20110114
  4. FLOLAN [Suspect]
     Active Substance: EPOPROSTENOL SODIUM
     Dosage: 34 DF, CO
     Dates: start: 20110114
  5. FLOLAN [Suspect]
     Active Substance: EPOPROSTENOL SODIUM
     Indication: PULMONARY HYPERTENSION
  6. ADEMPAS [Concomitant]
     Active Substance: RIOCIGUAT
  7. FLOLAN [Suspect]
     Active Substance: EPOPROSTENOL SODIUM
     Dosage: 34 DF, CO
     Dates: start: 20110114
  8. COUMADIN [Concomitant]
     Active Substance: WARFARIN SODIUM
  9. FLOLAN [Suspect]
     Active Substance: EPOPROSTENOL SODIUM
     Indication: PULMONARY HYPERTENSION
     Dosage: UNK

REACTIONS (6)
  - Device related infection [Unknown]
  - Central venous catheterisation [Unknown]
  - Device dislocation [Unknown]
  - Lung infection [Unknown]
  - Hospitalisation [Unknown]
  - Complication associated with device [Unknown]

NARRATIVE: CASE EVENT DATE: 201610
